FAERS Safety Report 5922221-9 (Version None)
Quarter: 2008Q4

REPORT INFORMATION
  Report Type: 
  Country: None (occurrence: None)
  Receive Date: 20081015
  Receipt Date: 20081003
  Transmission Date: 20090506
  Serious: No
  Sender: FDA-Public Use
  Company Number: 20085428

PATIENT
  Sex: Male

DRUGS (1)
  1. LIORESAL [Suspect]
     Indication: MUSCLE SPASTICITY
     Dosage: MCG, DAILY, INTRATHECAL
     Route: 037

REACTIONS (6)
  - ANXIETY [None]
  - CATHETER RELATED COMPLICATION [None]
  - CHEST PAIN [None]
  - DEPRESSION [None]
  - DEVICE MALFUNCTION [None]
  - DYSPNOEA [None]
